FAERS Safety Report 22298448 (Version 1)
Quarter: 2023Q2

REPORT INFORMATION
  Report Type: Report from Study
  Country: IT (occurrence: IT)
  Receive Date: 20230509
  Receipt Date: 20230509
  Transmission Date: 20230722
  Serious: Yes (Other)
  Sender: FDA-Public Use
  Company Number: None

PATIENT
  Age: 66 Year
  Sex: Female
  Weight: 55 kg

DRUGS (14)
  1. FLUOROURACIL [Suspect]
     Active Substance: FLUOROURACIL
     Indication: Pancreatic carcinoma
     Dosage: 2800 MG EVERY 14 DAYS
     Dates: start: 20221129
  2. IRINOTECAN [Suspect]
     Active Substance: IRINOTECAN
     Indication: Pancreatic carcinoma
     Dosage: 282 MG EVERY 14 DAYS
  3. DEURSIL [Concomitant]
     Active Substance: URSODIOL
     Dosage: 450 MG; 1 CP/DAY
  4. NOVORAPID [Concomitant]
     Active Substance: INSULIN ASPART
  5. GLICLAZIDE [Concomitant]
     Active Substance: GLICLAZIDE
     Dosage: 30 MG; 1 CP/DAY
  6. AMLODIPINE\PERINDOPRIL [Concomitant]
     Active Substance: AMLODIPINE\PERINDOPRIL
     Dosage: 4 MG + 5 MG; 1 CP/DAY
  7. LANTUS [Concomitant]
     Active Substance: INSULIN GLARGINE
     Dosage: 26 IU/DAY
  8. ROSUVASTATIN [Concomitant]
     Active Substance: ROSUVASTATIN
     Dosage: 20 MG+10 MG; 1 CP/DAY
  9. ERYTHROPOIETIN [Concomitant]
     Active Substance: ERYTHROPOIETIN
     Dosage: 1 FL/WEEK
  10. CALCIUM [Concomitant]
     Active Substance: CALCIUM
     Dosage: 1000 MG; 2 CP/DAY
  11. CHOLECALCIFEROL [Concomitant]
     Active Substance: CHOLECALCIFEROL
     Dosage: 10000 IU/ML, 40 GTT/WEEK
  12. LANSOPRAZOLE [Concomitant]
     Active Substance: LANSOPRAZOLE
     Dosage: 30 MG; 1 CP/DAY
  13. SERTRALINE [Concomitant]
     Active Substance: SERTRALINE HYDROCHLORIDE
     Dosage: 50 MG; 1 CP/DAY.
  14. LYRICA [Concomitant]
     Active Substance: PREGABALIN
     Dosage: 25 MG; 2 CP/DAY

REACTIONS (4)
  - Neurotoxicity [Not Recovered/Not Resolved]
  - Abdominal pain [Recovered/Resolved]
  - Nausea [Not Recovered/Not Resolved]
  - Mucosal inflammation [Recovered/Resolved]

NARRATIVE: CASE EVENT DATE: 20221201
